FAERS Safety Report 9419919 (Version 1)
Quarter: 2013Q3

REPORT INFORMATION
  Report Type: Spontaneous
  Country: US (occurrence: None)
  Receive Date: 20130723
  Receipt Date: 20130723
  Transmission Date: 20140515
  Serious: Yes (Life-Threatening)
  Sender: FDA-Public Use
  Company Number: None

PATIENT
  Age: 64 Year
  Sex: Male

DRUGS (3)
  1. LISINOPRIL, 10 MG, MYLAN [Suspect]
     Indication: HYPERTENSION
     Route: 048
     Dates: start: 20130716, end: 20130721
  2. OLANZAPINE 10 MG. SUN [Suspect]
     Indication: SCHIZOPHRENIA
     Dates: start: 20121029, end: 20130721
  3. OLANZAPINE 10 MG. SUN [Suspect]
     Indication: SCHIZOAFFECTIVE DISORDER
     Dates: start: 20121029, end: 20130721

REACTIONS (3)
  - Vision blurred [None]
  - Angina pectoris [None]
  - Headache [None]
